FAERS Safety Report 6249033-3 (Version None)
Quarter: 2009Q2

REPORT INFORMATION
  Report Type: 
  Country: None (occurrence: None)
  Receive Date: 20090624
  Receipt Date: 20090609
  Transmission Date: 20091009
  Serious: Yes (Life-Threatening)
  Sender: FDA-Public Use
  Company Number: IDA-00207

PATIENT
  Age: 91 Year
  Sex: Female

DRUGS (6)
  1. INDERAL [Suspect]
     Indication: HYPERTENSION
     Dosage: 20 MG DAILY ORAL
     Route: 048
     Dates: end: 20090511
  2. GARENOXACIN MESILATE HYDRATE [Suspect]
     Indication: PHARYNGITIS
     Dosage: 200 MG DAILY ORAL
     Route: 048
     Dates: start: 20090510, end: 20090511
  3. NICARDIPINE HYDROCHLORIDE [Concomitant]
     Route: 048
  4. MUCOSTA (REBAMIPIDE) [Concomitant]
  5. VOLTAREN [Concomitant]
  6. FAMOTIDINE [Concomitant]

REACTIONS (8)
  - ATRIOVENTRICULAR BLOCK COMPLETE [None]
  - BLOOD PRESSURE DECREASED [None]
  - DRUG INTERACTION [None]
  - HYPERHIDROSIS [None]
  - IMMOBILE [None]
  - OROPHARYNGEAL PAIN [None]
  - PYREXIA [None]
  - VOMITING [None]
